FAERS Safety Report 9170721 (Version 1)
Quarter: 2013Q1

REPORT INFORMATION
  Report Type: Spontaneous
  Country: TR (occurrence: None)
  Receive Date: 20130312
  Receipt Date: 20130312
  Transmission Date: 20140127
  Serious: Yes (Hospitalization)
  Sender: FDA-Public Use
  Company Number: SYM-2013-01493

PATIENT
  Age: 52 Year
  Sex: Male

DRUGS (4)
  1. FLUOROURACIL [Suspect]
     Indication: LARYNGEAL CANCER
  2. CISPLATIN [Suspect]
     Indication: LARYNGEAL CANCER
  3. METOCLOPRAMIDE [Suspect]
     Indication: VOMITING
     Dosage: FEW DAYS
     Route: 048
  4. DOCETAXEL [Suspect]
     Indication: LARYNGEAL CANCER

REACTIONS (8)
  - Parkinsonism [None]
  - Akathisia [None]
  - Nausea [None]
  - Vomiting [None]
  - Dysarthria [None]
  - Irritability [None]
  - Restlessness [None]
  - Masked facies [None]
